FAERS Safety Report 6342387-9 (Version None)
Quarter: 2009Q3

REPORT INFORMATION
  Report Type: 
  Country: None (occurrence: None)
  Receive Date: 20090908
  Receipt Date: 20001030
  Transmission Date: 20100115
  Serious: No
  Sender: FDA-Public Use
  Company Number: US-ROCHE-201045

PATIENT

DRUGS (2)
  1. GS4104 [Suspect]
     Indication: INFLUENZA
     Dates: start: 19990126, end: 19990126
  2. AUGMENTIN [Concomitant]
     Dates: start: 19990129, end: 19990207

REACTIONS (5)
  - CAESAREAN SECTION [None]
  - DRUG EXPOSURE DURING PREGNANCY [None]
  - EUSTACHIAN TUBE OBSTRUCTION [None]
  - PREGNANCY [None]
  - UPPER RESPIRATORY TRACT INFECTION [None]
